FAERS Safety Report 7972255-8 (Version None)
Quarter: 2011Q4

REPORT INFORMATION
  Report Type: 
  Country: None (occurrence: None)
  Receive Date: 20111213
  Receipt Date: 20111205
  Transmission Date: 20120403
  Serious: Yes (Life-Threatening)
  Sender: FDA-Public Use
  Company Number: CZ-BIOGENIDEC-2011BI020161

PATIENT
  Age: 36 Year
  Sex: Female

DRUGS (4)
  1. OMEPRAZOLE [Concomitant]
  2. SYMBICORT [Concomitant]
  3. TYSABRI [Suspect]
     Indication: RELAPSING-REMITTING MULTIPLE SCLEROSIS
     Route: 042
     Dates: start: 20110105, end: 20110202
  4. ALBUTEROL SULFATE AUTOHALER [Concomitant]
     Route: 055

REACTIONS (5)
  - PALPITATIONS [None]
  - DRUG ERUPTION [None]
  - ASTHENIA [None]
  - HYPERSENSITIVITY [None]
  - PRURITUS [None]
